FAERS Safety Report 19885035 (Version 1)
Quarter: 2021Q3

REPORT INFORMATION
  Report Type: Report from Study
  Country: FR (occurrence: FR)
  Receive Date: 20210927
  Receipt Date: 20210927
  Transmission Date: 20211014
  Serious: Yes (Death, Hospitalization, Other)
  Sender: FDA-Public Use
  Company Number: FR-ROCHE-2742856

PATIENT
  Age: 57 Year
  Sex: Female

DRUGS (16)
  1. ZOLPIDEM [Concomitant]
     Active Substance: ZOLPIDEM TARTRATE
     Indication: INSOMNIA
  2. ATEZOLIZUMAB. [Suspect]
     Active Substance: ATEZOLIZUMAB
     Indication: NON-SMALL CELL LUNG CANCER
     Dosage: 2 CYCLES
     Route: 041
     Dates: start: 20201113, end: 20201204
  3. OXYCONTIN [Concomitant]
     Active Substance: OXYCODONE HYDROCHLORIDE
     Indication: PAIN
     Route: 048
     Dates: start: 2020
  4. LYRICA [Concomitant]
     Active Substance: PREGABALIN
     Indication: PAIN
     Route: 048
     Dates: start: 2020
  5. INNOHEP [Concomitant]
     Active Substance: TINZAPARIN SODIUM
     Indication: DEEP VEIN THROMBOSIS
  6. CARBOPLATIN. [Suspect]
     Active Substance: CARBOPLATIN
     Indication: NON-SMALL CELL LUNG CANCER
     Dosage: EVERY 1 CYCLES DAY1 OF CYCLE OF 21 DAY
     Route: 042
     Dates: start: 20201113, end: 20201113
  7. INNOHEP [Concomitant]
     Active Substance: TINZAPARIN SODIUM
     Indication: OVARIAN VEIN THROMBOSIS
     Route: 058
     Dates: start: 20201222
  8. VANCOMYCIN [Concomitant]
     Active Substance: VANCOMYCIN
     Dates: start: 20201229, end: 20210107
  9. PEMETREXED. [Concomitant]
     Active Substance: PEMETREXED
     Indication: NON-SMALL CELL LUNG CANCER
     Dosage: EVERY 1 CYCLES DAY 1 OF CYCLE OF 21 DAYS
     Route: 042
     Dates: start: 20201113, end: 20201113
  10. PEMETREXED. [Concomitant]
     Active Substance: PEMETREXED
     Route: 042
     Dates: start: 20210121, end: 20210121
  11. OXYNORMORO [Concomitant]
     Active Substance: OXYCODONE HYDROCHLORIDE
     Indication: PAIN
     Dates: start: 2020
  12. ZYVOXID [Concomitant]
     Active Substance: LINEZOLID
     Dates: start: 20201229, end: 20210112
  13. PEMETREXED. [Concomitant]
     Active Substance: PEMETREXED
     Dosage: EVERY 1 CYCLES DAY 1 OF CYCLE OF 21 DAYS
     Route: 042
     Dates: start: 20201204, end: 20201223
  14. CARBOPLATIN. [Suspect]
     Active Substance: CARBOPLATIN
     Dosage: EVERY 1 CYCLE(S) DAY1 OF CYCLE OF 21 DAYS
     Route: 042
     Dates: start: 20201204, end: 20201223
  15. CARBOPLATIN. [Suspect]
     Active Substance: CARBOPLATIN
     Dosage: EVERY 1 CYCLE(S) DAY1 OF CYCLE OF 21 DAYS
     Route: 042
     Dates: start: 20210121, end: 20210121
  16. MIANSERINE [Concomitant]
     Active Substance: MIANSERIN HYDROCHLORIDE
     Indication: DEPRESSION
     Route: 048

REACTIONS (5)
  - Infusion related reaction [Recovered/Resolved]
  - Anaphylactic shock [Recovered/Resolved]
  - Dyspnoea [Not Recovered/Not Resolved]
  - Pneumonitis [Recovering/Resolving]
  - Hepatic cytolysis [Recovered/Resolved]

NARRATIVE: CASE EVENT DATE: 20201222
